FAERS Safety Report 6375594-X (Version None)
Quarter: 2009Q3

REPORT INFORMATION
  Report Type: 
  Country: None (occurrence: None)
  Receive Date: 20090924
  Receipt Date: 20090820
  Transmission Date: 20100115
  Serious: Yes (Other)
  Sender: FDA-Public Use
  Company Number: HQWYE423213SEP05

PATIENT
  Age: 71 Year
  Sex: Male
  Weight: 104 kg

DRUGS (2)
  1. BENEFIX [Suspect]
     Indication: FACTOR IX DEFICIENCY
     Dosage: FIX MAINTAINED AT ABOUT 80% UNTIL DAY 4 POST-OP
     Route: 042
     Dates: start: 20050310, end: 20050301
  2. BENEFIX [Suspect]
     Indication: SURGERY
     Dosage: NOT PROVIDED
     Route: 042
     Dates: start: 20050301, end: 20050321

REACTIONS (1)
  - DEEP VEIN THROMBOSIS [None]
